FAERS Safety Report 25741916 (Version 2)
Quarter: 2025Q4

REPORT INFORMATION
  Report Type: Spontaneous
  Country: GB (occurrence: GB)
  Receive Date: 20250829
  Receipt Date: 20251128
  Transmission Date: 20260117
  Serious: Yes (Other)
  Sender: GLAXOSMITHKLINE
  Company Number: GB-GSK-GB2025EME107673

PATIENT
  Sex: Female

DRUGS (2)
  1. MOMELOTINIB [Suspect]
     Active Substance: MOMELOTINIB
     Indication: Myelofibrosis
     Dosage: 200 MG
  2. MOMELOTINIB [Suspect]
     Active Substance: MOMELOTINIB
     Dosage: 150 MG

REACTIONS (7)
  - Traumatic lung injury [Not Recovered/Not Resolved]
  - Rib fracture [Not Recovered/Not Resolved]
  - Traumatic lung injury [Not Recovered/Not Resolved]
  - Cough [Recovering/Resolving]
  - White blood cell count decreased [Recovering/Resolving]
  - Dyspepsia [Recovering/Resolving]
  - Oesophagitis [Recovering/Resolving]
